FAERS Safety Report 12771041 (Version 2)
Quarter: 2016Q4

REPORT INFORMATION
  Report Type: Report from Study
  Country: US (occurrence: US)
  Receive Date: 20160922
  Receipt Date: 20161028
  Transmission Date: 20170207
  Serious: No
  Sender: FDA-Public Use
  Company Number: PHEH2016US023859

PATIENT
  Age: 71 Year
  Sex: Male

DRUGS (1)
  1. COSENTYX [Suspect]
     Active Substance: SECUKINUMAB
     Indication: PRODUCT USED FOR UNKNOWN INDICATION
     Route: 058

REACTIONS (3)
  - Incorrect dose administered [Unknown]
  - Accidental exposure to product [Unknown]
  - Device issue [Unknown]

NARRATIVE: CASE EVENT DATE: 20160914
